FAERS Safety Report 8461696-0 (Version None)
Quarter: 2012Q2

REPORT INFORMATION
  Report Type: 
  Country: None (occurrence: None)
  Receive Date: 20120625
  Receipt Date: 20120615
  Transmission Date: 20120825
  Serious: Yes (Hospitalization)
  Sender: FDA-Public Use
  Company Number: US-US-EMD SERONO, INC.-7141373

PATIENT
  Sex: Male

DRUGS (3)
  1. SAIZEN [Suspect]
     Indication: GROWTH HORMONE DEFICIENCY
     Route: 058
     Dates: start: 20100721
  2. SAIZEN [Suspect]
     Route: 058
     Dates: start: 20110308
  3. SAIZEN [Suspect]
     Route: 058

REACTIONS (4)
  - SEPSIS [None]
  - GASTROINTESTINAL DISORDER [None]
  - WEIGHT ABNORMAL [None]
  - METABOLIC DISORDER [None]
